FAERS Safety Report 9301363 (Version 3)
Quarter: 2014Q2

REPORT INFORMATION
  Report Type: Spontaneous
  Country: JP (occurrence: JP)
  Receive Date: 20130521
  Receipt Date: 20140512
  Transmission Date: 20141212
  Serious: Yes (Death, Other)
  Sender: FDA-Public Use
  Company Number: JP-009507513-1305JPN011191

PATIENT
  Age: 83 Year
  Sex: Male

DRUGS (13)
  1. GLACTIV [Suspect]
     Indication: TYPE 2 DIABETES MELLITUS
     Dosage: 25 MG, QD
     Route: 048
     Dates: start: 20120620, end: 20130304
  2. RECALBON [Suspect]
     Indication: OSTEOPOROSIS
     Dosage: 50 MG, ONCE EVERY 4 WEEKS
     Route: 048
     Dates: start: 20121022, end: 2013
  3. PREDONINE [Suspect]
     Indication: RHEUMATOID ARTHRITIS
     Dosage: 7.5 MG, QD
     Route: 048
     Dates: start: 20040517, end: 20130304
  4. PREDONINE [Suspect]
     Dosage: UNK
     Route: 041
     Dates: start: 20120823, end: 20120827
  5. METHYCOBAL [Concomitant]
     Dosage: UNK
     Dates: start: 19950508, end: 20130304
  6. PLAVIX [Concomitant]
     Dosage: UNK
     Dates: start: 20081225, end: 20130304
  7. PARIET [Concomitant]
  8. ALOSITOL [Concomitant]
     Dosage: UNK
     Dates: start: 20120620, end: 20130304
  9. BAKTAR [Concomitant]
     Dosage: UNK
     Dates: start: 20120620, end: 20130304
  10. PROGRAF [Concomitant]
     Dosage: UNK
     Dates: start: 20090406, end: 20130304
  11. BREDININ [Concomitant]
     Dosage: UNK
     Dates: start: 20120620, end: 20130304
  12. BONALON [Concomitant]
     Dosage: UNK
     Dates: start: 20120620, end: 20120924
  13. PENTCILLIN [Concomitant]
     Dosage: UNK
     Dates: start: 20120823, end: 20120827

REACTIONS (1)
  - Lung neoplasm malignant [Fatal]
